FAERS Safety Report 10736295 (Version 1)
Quarter: 2015Q1

REPORT INFORMATION
  Report Type: Spontaneous
  Country: US (occurrence: None)
  Receive Date: 20150122
  Receipt Date: 20150122
  Transmission Date: 20150721
  Serious: Yes (Life-Threatening, Disabling)
  Sender: FDA-Public Use
  Company Number: None

PATIENT
  Age: 50 Year
  Sex: Female
  Weight: 63.5 kg

DRUGS (3)
  1. PREDNISONE 60 MG [Suspect]
     Active Substance: PREDNISONE
     Indication: ARTHRALGIA
     Route: 048
     Dates: start: 20140614, end: 20140617
  2. PREDNISONE 60 MG [Suspect]
     Active Substance: PREDNISONE
     Indication: EYELIDS PRURITUS
     Route: 048
     Dates: start: 20140614, end: 20140617
  3. PREDNISONE 60 MG [Suspect]
     Active Substance: PREDNISONE
     Indication: EYELID OEDEMA
     Route: 048
     Dates: start: 20140614, end: 20140617

REACTIONS (3)
  - Tremor [None]
  - Depression [None]
  - Suicidal ideation [None]

NARRATIVE: CASE EVENT DATE: 20140614
